FAERS Safety Report 7097549-2 (Version None)
Quarter: 2010Q4

REPORT INFORMATION
  Report Type: 
  Country: None (occurrence: None)
  Receive Date: 20101111
  Receipt Date: 20101101
  Transmission Date: 20110411
  Serious: Yes (Hospitalization)
  Sender: FDA-Public Use
  Company Number: US-AMGEN-USASP2008000003

PATIENT

DRUGS (2)
  1. ENBREL [Suspect]
     Indication: RHEUMATOID ARTHRITIS
     Dosage: UNK
  2. METHOTREXATE [Concomitant]
     Dosage: UNK
     Dates: start: 20080310

REACTIONS (3)
  - CAESAREAN SECTION [None]
  - LABOUR INDUCTION [None]
  - OLIGOHYDRAMNIOS [None]
